FAERS Safety Report 10528109 (Version 1)
Quarter: 2014Q4

REPORT INFORMATION
  Report Type: Spontaneous
  Country: US (occurrence: None)
  Receive Date: 20141017
  Receipt Date: 20141017
  Transmission Date: 20150528
  Serious: Yes (Disabling)
  Sender: FDA-Public Use
  Company Number: None

PATIENT
  Age: 67 Year
  Sex: Female

DRUGS (1)
  1. XOPENEX HFA [Suspect]
     Active Substance: LEVALBUTEROL TARTRATE
     Indication: ASTHMA EXERCISE INDUCED
     Dosage: 4-6 AS NEEDED INHALATION
     Route: 055
     Dates: start: 20141012, end: 20141014

REACTIONS (2)
  - Trigeminal neuralgia [None]
  - Condition aggravated [None]

NARRATIVE: CASE EVENT DATE: 20141012
